FAERS Safety Report 10606420 (Version 1)
Quarter: 2014Q4

REPORT INFORMATION
  Report Type: Spontaneous
  Country: US (occurrence: None)
  Receive Date: 20141124
  Receipt Date: 20141124
  Transmission Date: 20150529
  Serious: Yes (Hospitalization)
  Sender: FDA-Public Use
  Company Number: None

PATIENT
  Age: 68 Year
  Sex: Female
  Weight: 81.19 kg

DRUGS (1)
  1. SYMBICORT [Suspect]
     Active Substance: BUDESONIDE\FORMOTEROL FUMARATE DIHYDRATE
     Indication: ASTHMA
     Dosage: 2 PUFF BY MOUTH TWICE A DAY, INHALATION

REACTIONS (8)
  - Vomiting [None]
  - Weight decreased [None]
  - Fungal infection [None]
  - Drug ineffective [None]
  - Throat tightness [None]
  - Pharyngitis [None]
  - Device related infection [None]
  - Stress urinary incontinence [None]
